FAERS Safety Report 4841358-9 (Version None)
Quarter: 2005Q4

REPORT INFORMATION
  Report Type: 
  Country: None (occurrence: None)
  Receive Date: 20051027
  Receipt Date: 20050210
  Transmission Date: 20060501
  Serious: Yes (Other)
  Sender: FDA-Public Use
  Company Number: HQWYE272111FEB05

PATIENT
  Sex: Female

DRUGS (8)
  1. PREMARIN [Suspect]
     Indication: HORMONE REPLACEMENT THERAPY
     Dosage: ORAL
     Route: 048
     Dates: start: 19900101, end: 20000201
  2. CYCRIN [Suspect]
  3. ESTRACE [Suspect]
  4. ESTRADIOL [Suspect]
  5. ESTRATAB [Suspect]
  6. NORETHINDRONE ACETATE [Suspect]
  7. PROGESTERONE [Suspect]
  8. PROVERA [Suspect]

REACTIONS (1)
  - BREAST CANCER [None]
